FAERS Safety Report 9774852 (Version 1)
Quarter: 2013Q4

REPORT INFORMATION
  Report Type: Spontaneous
  Country: US (occurrence: None)
  Receive Date: 20131219
  Receipt Date: 20131219
  Transmission Date: 20140711
  Serious: Yes (Disabling)
  Sender: FDA-Public Use
  Company Number: None

PATIENT
  Age: 75 Year
  Sex: Female
  Weight: 89.81 kg

DRUGS (9)
  1. CRESTOR [Suspect]
     Indication: BLOOD CHOLESTEROL
     Route: 048
     Dates: start: 201209, end: 201306
  2. ATENOL [Concomitant]
  3. GABAPENTIN [Concomitant]
  4. GLIPIZIDE [Concomitant]
  5. ISOSORBIDE MONONITRATE [Concomitant]
  6. LOSARTIN HCTZ [Concomitant]
  7. ALLOPURINOL [Concomitant]
  8. VITAMIN D [Concomitant]
  9. CENTRUM SILVER VITAMINS [Concomitant]

REACTIONS (4)
  - Neck pain [None]
  - Pain in extremity [None]
  - Pain in extremity [None]
  - Fibromyalgia [None]
